FAERS Safety Report 5498367-9 (Version None)
Quarter: 2007Q4

REPORT INFORMATION
  Report Type: 
  Country: None (occurrence: None)
  Receive Date: 20071025
  Receipt Date: 20070822
  Transmission Date: 20080405
  Serious: Yes (Hospitalization)
  Sender: FDA-Public Use
  Company Number: NO-GENENTECH-250288

PATIENT
  Sex: Female

DRUGS (6)
  1. AVASTIN [Suspect]
     Indication: CHOROIDAL NEOVASCULARISATION
     Route: 031
     Dates: start: 20070402, end: 20070508
  2. DUROFERON [Concomitant]
     Indication: DRUG USE FOR UNKNOWN INDICATION
  3. FOSAMAX [Concomitant]
     Indication: DRUG USE FOR UNKNOWN INDICATION
  4. BURINEX [Concomitant]
     Indication: DRUG USE FOR UNKNOWN INDICATION
  5. VITAMIN B-12 [Concomitant]
     Indication: DRUG USE FOR UNKNOWN INDICATION
  6. MAXITROL [Concomitant]
     Indication: DRUG USE FOR UNKNOWN INDICATION

REACTIONS (1)
  - ANAEMIA [None]
